FAERS Safety Report 15171049 (Version 6)
Quarter: 2019Q3

REPORT INFORMATION
  Report Type: Report from Study
  Country: None (occurrence: HU)
  Receive Date: 20180720
  Receipt Date: 20190930
  Transmission Date: 20191004
  Serious: Yes (Hospitalization)
  Sender: FDA-Public Use
  Company Number: HU-ABBVIE-18K-076-2322624-00

PATIENT
  Sex: Male

DRUGS (5)
  1. DUODOPA [Suspect]
     Active Substance: CARBIDOPA\LEVODOPA
     Dosage: MORNING DOSE 3.0 ML; CONTINUOUS DOSE 3.2 ML/H;EXTRA DOSE 0.4ML
     Route: 050
  2. DUODOPA [Suspect]
     Active Substance: CARBIDOPA\LEVODOPA
     Dosage: MORNING DOSE 3.0 ML; CONTINUOUS DOSE 2.5 ML/H;EXTRA DOSE 0.4ML
     Route: 050
     Dates: start: 201906, end: 20190913
  3. DUODOPA [Suspect]
     Active Substance: CARBIDOPA\LEVODOPA
     Indication: PRODUCT USED FOR UNKNOWN INDICATION
     Dosage: MORNING DOSE 4.0ML; CONTINUOUS DOSE 3.9ML/H;EXTRA DOSE 0.8ML
     Route: 050
     Dates: start: 20170202
  4. XANAX [Concomitant]
     Active Substance: ALPRAZOLAM
     Dosage: 0.25 MG AT 10 AM; 0.25 MG AT 7PM; 0.5 MG AT 10PM
     Route: 048
  5. XANAX [Concomitant]
     Active Substance: ALPRAZOLAM
     Indication: PRODUCT USED FOR UNKNOWN INDICATION
     Dosage: 0.5MG AT 2PM; 0.5MG AT 5PM; 0.25MG AT 8PM; 0.25MG ATH 10PM
     Route: 048

REACTIONS (20)
  - Disorientation [Recovered/Resolved]
  - Salivary hypersecretion [Not Recovered/Not Resolved]
  - Parkinson^s disease [Unknown]
  - Neurodegenerative disorder [Not Recovered/Not Resolved]
  - Palatal disorder [Not Recovered/Not Resolved]
  - General physical health deterioration [Not Recovered/Not Resolved]
  - Gambling disorder [Recovering/Resolving]
  - Impulse-control disorder [Recovering/Resolving]
  - Hallucination, visual [Not Recovered/Not Resolved]
  - Vessel puncture site reaction [Unknown]
  - Urinary incontinence [Not Recovered/Not Resolved]
  - Vessel puncture site pain [Unknown]
  - Paranoia [Unknown]
  - Mental disorder [Unknown]
  - Muscle spasms [Recovered/Resolved]
  - Mood altered [Unknown]
  - Vessel puncture site erythema [Unknown]
  - Dysgeusia [Recovered/Resolved]
  - Pyrexia [Unknown]
  - Vessel puncture site swelling [Unknown]

NARRATIVE: CASE EVENT DATE: 2017
